FAERS Safety Report 9665637 (Version 1)
Quarter: 2013Q4

REPORT INFORMATION
  Report Type: Spontaneous
  Country: US (occurrence: None)
  Receive Date: 20131101
  Receipt Date: 20131101
  Transmission Date: 20140711
  Serious: No
  Sender: FDA-Public Use
  Company Number: None

PATIENT
  Age: 14 Day
  Sex: Male
  Weight: 91.17 kg

DRUGS (1)
  1. ALBUTEROL [Suspect]
     Indication: CHRONIC OBSTRUCTIVE PULMONARY DISEASE
     Dosage: AS NEEDED , INHALATION
     Dates: start: 20131001, end: 20131031

REACTIONS (5)
  - Drug effect decreased [None]
  - Cough [None]
  - Pulmonary congestion [None]
  - Condition aggravated [None]
  - Product quality issue [None]
